FAERS Safety Report 14909178 (Version 13)
Quarter: 2020Q3

REPORT INFORMATION
  Report Type: Spontaneous
  Country: US (occurrence: US)
  Receive Date: 20180517
  Receipt Date: 20200918
  Transmission Date: 20201102
  Serious: No
  Sender: FDA-Public Use
  Company Number: US-PFIZER INC-2018198653

PATIENT
  Age: 62 Year
  Sex: Female
  Weight: 88 kg

DRUGS (23)
  1. LOPERAMIDE [Concomitant]
     Active Substance: LOPERAMIDE
     Dosage: UNK
  2. VITAMIN D3 [Concomitant]
     Active Substance: CHOLECALCIFEROL
     Dosage: UNK
  3. HYDROCHLOROTHIAZIDE/OLMESARTAN [Concomitant]
     Active Substance: HYDROCHLOROTHIAZIDE\OLMESARTAN MEDOXOMIL
     Dosage: UNK
  4. IMODIUM [Concomitant]
     Active Substance: LOPERAMIDE HYDROCHLORIDE
     Dosage: UNK
  5. CLOTRIMAZOLE. [Concomitant]
     Active Substance: CLOTRIMAZOLE
     Dosage: UNK
  6. VITAMIN D2 [Concomitant]
     Active Substance: ERGOCALCIFEROL
     Dosage: UNK
  7. AMBIEN [Concomitant]
     Active Substance: ZOLPIDEM TARTRATE
     Dosage: UNK
  8. BENICAR HCT [Concomitant]
     Active Substance: HYDROCHLOROTHIAZIDE\OLMESARTAN MEDOXOMIL
     Dosage: UNK
  9. MAGNESIUM [Concomitant]
     Active Substance: MAGNESIUM
     Indication: MUSCLE SPASMS
     Dosage: UNK, AS NEEDED
  10. SUTENT [Suspect]
     Active Substance: SUNITINIB MALATE
     Dosage: 37.5 MG, CYCLIC (4 WEEKS ON, 2 WEEKS OFF)
     Route: 048
     Dates: start: 20180503
  11. PROMETHAZINE [Concomitant]
     Active Substance: PROMETHAZINE HYDROCHLORIDE
     Dosage: UNK
  12. SUTENT [Suspect]
     Active Substance: SUNITINIB MALATE
     Indication: RENAL CANCER STAGE IV
     Dosage: 50 MG, CYCLIC (28 DAYS ON/14 DAYS OFF)
     Dates: start: 20180504, end: 201805
  13. PAPAYA ENZYMES [Concomitant]
     Dosage: UNK
  14. SYSTANE (HYPROMELLOSE 2910 (4000 MPA.S)) [Concomitant]
     Active Substance: HYPROMELLOSE 2910 (4000 MPA.S)
     Dosage: UNK
  15. VITAMIN D [Concomitant]
     Active Substance: VITAMIN D NOS
     Dosage: UNK
  16. PREDNISOLONE. [Concomitant]
     Active Substance: PREDNISOLONE
     Dosage: UNK
  17. ALPRAZOLAM. [Concomitant]
     Active Substance: ALPRAZOLAM
     Dosage: UNK
  18. PROBIOTICS [Concomitant]
     Active Substance: PROBIOTICS NOS
     Dosage: UNK
  19. SUTENT [Suspect]
     Active Substance: SUNITINIB MALATE
     Dosage: 37.5 MG, CYCLIC (2 WEEKS ON/1 WEEK OFF)
     Dates: start: 20180504, end: 2018
  20. SUTENT [Suspect]
     Active Substance: SUNITINIB MALATE
     Dosage: 37.5 MG, CYCLIC (2 WEEKS ON/1 WEEK OFF)
     Dates: start: 20181103, end: 201811
  21. VITAMIN C [Concomitant]
     Active Substance: ASCORBIC ACID
     Dosage: UNK
  22. AMLODIPINE [Concomitant]
     Active Substance: AMLODIPINE BESYLATE
     Dosage: UNK
  23. PREDNISOLONE ACETATE. [Concomitant]
     Active Substance: PREDNISOLONE ACETATE
     Dosage: UNK

REACTIONS (64)
  - Pollakiuria [Unknown]
  - Oral pain [Recovered/Resolved]
  - Swollen tongue [Unknown]
  - Tongue disorder [Unknown]
  - Dizziness [Unknown]
  - Tooth discolouration [Unknown]
  - Gingival discolouration [Unknown]
  - Abdominal discomfort [Unknown]
  - Pyrexia [Unknown]
  - Dysphagia [Unknown]
  - Alopecia [Recovering/Resolving]
  - Ageusia [Unknown]
  - Eye infection [Unknown]
  - Feeling cold [Not Recovered/Not Resolved]
  - Oral mucosal blistering [Unknown]
  - Haemorrhoids [Unknown]
  - Glossodynia [Unknown]
  - Platelet count decreased [Recovering/Resolving]
  - Perineal pain [Not Recovered/Not Resolved]
  - Hair colour changes [Unknown]
  - Neutrophil count increased [Unknown]
  - Frequent bowel movements [Unknown]
  - Oropharyngeal pain [Unknown]
  - Vomiting [Recovered/Resolved]
  - Tongue discomfort [Unknown]
  - Influenza [Unknown]
  - Malaise [Unknown]
  - Dry mouth [Unknown]
  - Hunger [Unknown]
  - Fatigue [Not Recovered/Not Resolved]
  - Insomnia [Unknown]
  - Hair texture abnormal [Unknown]
  - Faeces discoloured [Unknown]
  - Chills [Unknown]
  - Headache [Unknown]
  - Nausea [Not Recovered/Not Resolved]
  - Hyperaesthesia [Unknown]
  - Decreased appetite [Not Recovered/Not Resolved]
  - Stress [Not Recovered/Not Resolved]
  - Flatulence [Unknown]
  - Chromaturia [Unknown]
  - Diarrhoea [Recovering/Resolving]
  - Dehydration [Unknown]
  - Proctalgia [Recovering/Resolving]
  - Anxiety [Unknown]
  - Blood pressure increased [Recovering/Resolving]
  - Condition aggravated [Not Recovered/Not Resolved]
  - Feeling abnormal [Unknown]
  - Muscle spasms [Unknown]
  - Stomatitis [Recovered/Resolved]
  - Swelling face [Unknown]
  - Asthenia [Unknown]
  - Dyspepsia [Unknown]
  - Blood calcium increased [Unknown]
  - Madarosis [Unknown]
  - Urinary tract infection [Unknown]
  - Migraine with aura [Not Recovered/Not Resolved]
  - Vulval disorder [Unknown]
  - Musculoskeletal stiffness [Unknown]
  - Tongue discolouration [Recovered/Resolved]
  - Viral infection [Unknown]
  - Taste disorder [Unknown]
  - Pain in extremity [Unknown]
  - Thirst [Unknown]

NARRATIVE: CASE EVENT DATE: 2018
